FAERS Safety Report 7612151-9 (Version None)
Quarter: 2011Q3

REPORT INFORMATION
  Report Type: 
  Country: None (occurrence: None)
  Receive Date: 20110715
  Receipt Date: 20110708
  Transmission Date: 20111222
  Serious: Yes (Hospitalization, Other)
  Sender: FDA-Public Use
  Company Number: IE-ABBOTT-11P-229-0837656-00

PATIENT
  Sex: Male

DRUGS (1)
  1. EPILIM CHRONOSPHERE [Suspect]
     Indication: EPILEPSY
     Dosage: PROLONGED-RELEASE GRANULES
     Route: 048

REACTIONS (4)
  - MEDICATION RESIDUE [None]
  - CONVULSION [None]
  - EPILEPSY [None]
  - DRUG INEFFECTIVE [None]
